FAERS Safety Report 21191919 (Version 2)
Quarter: 2022Q4

REPORT INFORMATION
  Report Type: Report from Study
  Country: US (occurrence: US)
  Receive Date: 20220809
  Receipt Date: 20221003
  Transmission Date: 20230113
  Serious: No
  Sender: FDA-Public Use
  Company Number: US-NOVARTISTESTPH-NVSC2022US179645

PATIENT
  Sex: Female

DRUGS (1)
  1. COSENTYX [Suspect]
     Active Substance: SECUKINUMAB
     Indication: Psoriasis
     Dosage: 300 MG, ONCE A WEEK
     Route: 058

REACTIONS (7)
  - Fatigue [Unknown]
  - Pain [Unknown]
  - Back pain [Unknown]
  - Injection site bruising [Unknown]
  - Weight decreased [Unknown]
  - Decreased appetite [Unknown]
  - Nasopharyngitis [Unknown]
